FAERS Safety Report 19647803 (Version 1)
Quarter: 2021Q3

REPORT INFORMATION
  Report Type: Spontaneous
  Country: FR (occurrence: FR)
  Receive Date: 20210802
  Receipt Date: 20210802
  Transmission Date: 20211014
  Serious: Yes (Hospitalization)
  Sender: FDA-Public Use
  Company Number: FR-MYLANLABS-2021M1046946

PATIENT
  Age: 78 Year
  Sex: Male
  Weight: 56 kg

DRUGS (3)
  1. ACICLOVIR MYLAN [Suspect]
     Active Substance: ACYCLOVIR
     Indication: INFECTION
     Dosage: 600 MILLIGRAM, TOTAL
     Route: 042
     Dates: start: 20200929, end: 20200929
  2. CEFTRIAXONE MYLAN 1 G, POUDRE POUR SOLUTION INJECTABLE [Suspect]
     Active Substance: CEFTRIAXONE SODIUM
     Indication: INFECTION
     Dosage: 1 DOSAGE FORM, QD
     Route: 042
     Dates: start: 20200927, end: 20201001
  3. AMOXICILLINE ARROW [Suspect]
     Active Substance: AMOXICILLIN
     Indication: INFECTION
     Dosage: 2 GRAM, Q8H
     Route: 042
     Dates: start: 20200929, end: 20200930

REACTIONS (5)
  - Hepatocellular injury [Recovered/Resolved]
  - Eosinophilia [Recovered/Resolved]
  - Renal failure [Recovered/Resolved]
  - Pruritus [Recovered/Resolved]
  - Rash erythematous [Recovered/Resolved]

NARRATIVE: CASE EVENT DATE: 20200930
